FAERS Safety Report 9928898 (Version 4)
Quarter: 2014Q4

REPORT INFORMATION
  Report Type: Spontaneous
  Country: IT (occurrence: IT)
  Receive Date: 20140227
  Receipt Date: 20141030
  Transmission Date: 20150529
  Serious: Yes (Death, Hospitalization)
  Sender: FDA-Public Use
  Company Number: IT-PFIZER INC-2014047644

PATIENT
  Age: 88 Year
  Sex: Male

DRUGS (6)
  1. TRIATEC [Suspect]
     Active Substance: RAMIPRIL
     Dosage: 2.5 MG, DAILY
     Route: 048
     Dates: start: 20110101, end: 20131008
  2. TRIATEC HCT [Suspect]
     Active Substance: HYDROCHLOROTHIAZIDE\RAMIPRIL
     Dosage: 1 DOSAGE FORM; DAILY
     Route: 048
     Dates: start: 20110101, end: 20131008
  3. ALMARYTM [Suspect]
     Active Substance: FLECAINIDE ACETATE
     Dosage: 1 DOSAGE FORM; DAILY
     Route: 048
     Dates: start: 20110101, end: 20131008
  4. TAVOR [Concomitant]
     Active Substance: LORAZEPAM
     Dosage: UNK
  5. DILATREND [Suspect]
     Active Substance: CARVEDILOL
     Dosage: 2 DOSAGE FORM; DAILY
     Route: 048
     Dates: start: 20110101, end: 20131008
  6. ASCRIPTIN [Concomitant]
     Active Substance: ASPIRIN
     Dosage: UNK

REACTIONS (4)
  - Aortic aneurysm [Unknown]
  - Syncope [Recovering/Resolving]
  - Urinary incontinence [Unknown]
  - Pulmonary embolism [Fatal]

NARRATIVE: CASE EVENT DATE: 20131008
